FAERS Safety Report 11004151 (Version 1)
Quarter: 2015Q2

REPORT INFORMATION
  Report Type: Spontaneous
  Country: GB (occurrence: GB)
  Receive Date: 20150409
  Receipt Date: 20150409
  Transmission Date: 20150821
  Serious: Yes (Other)
  Sender: FDA-Public Use
  Company Number: GB-TEVA-553307ACC

PATIENT
  Age: 43 Year
  Sex: Female

DRUGS (2)
  1. PROPRANOLOL [Suspect]
     Active Substance: PROPRANOLOL\PROPRANOLOL HYDROCHLORIDE
     Indication: ANXIETY
     Dosage: 10-60MG DAILY FOR THE LAST 20 YEARS
     Route: 048
  2. PROPRANOLOL [Suspect]
     Active Substance: PROPRANOLOL\PROPRANOLOL HYDROCHLORIDE
     Indication: ANXIETY
     Dosage: 40 MILLIGRAM DAILY; 40MG DAILY FOR THE LAST 20 YEARS
     Route: 048

REACTIONS (4)
  - Muscle twitching [Not Recovered/Not Resolved]
  - Neuropathy peripheral [Not Recovered/Not Resolved]
  - Euphoric mood [Not Recovered/Not Resolved]
  - Abdominal discomfort [Not Recovered/Not Resolved]
